FAERS Safety Report 22218165 (Version 1)
Quarter: 2023Q2

REPORT INFORMATION
  Report Type: Other
  Country: GB (occurrence: GB)
  Receive Date: 20230417
  Receipt Date: 20230417
  Transmission Date: 20230722
  Serious: Yes (Other)
  Sender: FDA-Public Use
  Company Number: None

PATIENT
  Age: 53 Year
  Sex: Female
  Weight: 67 kg

DRUGS (2)
  1. ATENOLOL [Suspect]
     Active Substance: ATENOLOL
     Indication: Ill-defined disorder
     Dosage: UNK
     Route: 065
     Dates: start: 20230327
  2. RAMIPRIL [Concomitant]
     Active Substance: RAMIPRIL
     Indication: Ill-defined disorder
     Dosage: TAKE ONE DAILY, QD
     Route: 065
     Dates: start: 20230306

REACTIONS (1)
  - Electrocardiogram PR prolongation [Unknown]

NARRATIVE: CASE EVENT DATE: 20230327
